FAERS Safety Report 25681310 (Version 1)
Quarter: 2025Q3

REPORT INFORMATION
  Report Type: Spontaneous
  Country: US (occurrence: None)
  Receive Date: 20250813
  Receipt Date: 20250813
  Transmission Date: 20251020
  Serious: Yes (Other)
  Sender: FDA-CTU
  Company Number: None

PATIENT
  Age: 70 Year
  Sex: Male

DRUGS (15)
  1. ABIRATERONE ACETATE [Suspect]
     Active Substance: ABIRATERONE ACETATE
     Indication: Prostate cancer
     Dosage: FREQUENCY : DAILY;?
     Route: 048
     Dates: start: 20250429
  2. ELIGARD [Concomitant]
     Active Substance: LEUPROLIDE ACETATE
  3. PREDNISONE [Concomitant]
     Active Substance: PREDNISONE
  4. ACEBUTOLOL [Concomitant]
     Active Substance: ACEBUTOLOL
  5. AMLODIPINE [Concomitant]
     Active Substance: AMLODIPINE BESYLATE
  6. CALCIUM\VITAMIN D [Concomitant]
     Active Substance: CALCIUM\VITAMIN D
  7. CLONIDINE [Concomitant]
     Active Substance: CLONIDINE
  8. DOXAZOSIN [Concomitant]
     Active Substance: DOXAZOSIN MESYLATE
  9. LISINOPRIL [Concomitant]
     Active Substance: LISINOPRIL
  10. DIETARY SUPPLEMENT [Concomitant]
     Active Substance: DIETARY SUPPLEMENT
  11. TEMAZEPAM [Concomitant]
     Active Substance: TEMAZEPAM
  12. VITAMIN B COMPLEX [Concomitant]
     Active Substance: CYANOCOBALAMIN\DEXPANTHENOL\NIACINAMIDE\PYRIDOXINE HYDROCHLORIDE\RIBOFLAVIN 5^-PHOSPHATE SODIUM\THIA
  13. VITAMIN C [Concomitant]
     Active Substance: ASCORBIC ACID
  14. Aspirin 81mg EC [Concomitant]
  15. TRAMADOL [Concomitant]
     Active Substance: TRAMADOL

REACTIONS (4)
  - Back pain [None]
  - Spinal fracture [None]
  - Asthenia [None]
  - Walking aid user [None]

NARRATIVE: CASE EVENT DATE: 20250701
